FAERS Safety Report 7314082-0 (Version None)
Quarter: 2011Q1

REPORT INFORMATION
  Report Type: 
  Country: None (occurrence: None)
  Receive Date: 20110215
  Receipt Date: 20110209
  Transmission Date: 20110831
  Serious: Yes (Other)
  Sender: FDA-Public Use
  Company Number: NSR_00205_2011

PATIENT
  Sex: Male

DRUGS (6)
  1. FLUOXETINE [Suspect]
     Indication: ANGER
     Dosage: (10 MG QD, [TAKEN EVERY EVENING; EXTRA MORNING DOSE TAKEN OCCASIONALLY] ORAL)
     Route: 048
     Dates: start: 20101101
  2. METFORMIN HCL [Concomitant]
  3. FLUOXETINE [Suspect]
     Indication: ANGER
     Dosage: (10 MG QD, [TAKEN EVERY EVENING; EXTRA MORNING DOSE TAKEN OCCASIONALLY] ORAL)
     Route: 048
  4. MULTI-VITAMINS [Concomitant]
  5. LIPITOR [Concomitant]
  6. GLIPIZIDE [Concomitant]

REACTIONS (7)
  - PALPITATIONS [None]
  - RESTLESSNESS [None]
  - SEROTONIN SYNDROME [None]
  - ABNORMAL DREAMS [None]
  - INCORRECT DOSE ADMINISTERED [None]
  - STRESS [None]
  - PRODUCT SUBSTITUTION ISSUE [None]
